FAERS Safety Report 9790254 (Version 1)
Quarter: 2013Q4

REPORT INFORMATION
  Report Type: Report from Study
  Country: LB (occurrence: LB)
  Receive Date: 20131231
  Receipt Date: 20131231
  Transmission Date: 20140711
  Serious: Yes (Death, Hospitalization, Other)
  Sender: FDA-Public Use
  Company Number: LB-SA-2013SA135864

PATIENT
  Age: 78 Year
  Sex: Female

DRUGS (10)
  1. INSULIN GLARGINE [Suspect]
     Indication: PRODUCT USED FOR UNKNOWN INDICATION
     Route: 065
     Dates: start: 2013
  2. NOVONORM [Concomitant]
  3. TRADJENTA [Concomitant]
  4. RABEPRAZOLE [Concomitant]
  5. ZALDIAR [Concomitant]
  6. ATARAX [Concomitant]
  7. LASIX [Concomitant]
  8. SINTROM [Concomitant]
  9. CORDARONE [Concomitant]
  10. ADENURIC [Concomitant]

REACTIONS (4)
  - Hypoxia [Fatal]
  - Somnolence [Fatal]
  - Asthenia [Fatal]
  - General physical health deterioration [Fatal]
